FAERS Safety Report 14270515 (Version 1)
Quarter: 2017Q4

REPORT INFORMATION
  Report Type: Spontaneous
  Country: US (occurrence: US)
  Receive Date: 20171211
  Receipt Date: 20171211
  Transmission Date: 20180321
  Serious: Yes (Other)
  Sender: FDA-Public Use
  Company Number: US-OTSUKA-2016_007863

PATIENT
  Sex: Female

DRUGS (1)
  1. ABILIFY [Suspect]
     Active Substance: ARIPIPRAZOLE
     Indication: BIPOLAR I DISORDER
     Dosage: 60 MG, QD
     Route: 048

REACTIONS (3)
  - Mania [Unknown]
  - Gambling [Unknown]
  - Off label use [Unknown]

NARRATIVE: CASE EVENT DATE: 2002
